FAERS Safety Report 10620534 (Version 2)
Quarter: 2014Q4

REPORT INFORMATION
  Report Type: Report from Study
  Country: US (occurrence: US)
  Receive Date: 20141202
  Receipt Date: 20141202
  Transmission Date: 20150529
  Serious: Yes (Life-Threatening, Hospitalization, Other)
  Sender: FDA-Public Use
  Company Number: US-GLAXOSMITHKLINE-US2014GSK025708

PATIENT
  Age: 15 Year
  Sex: Male
  Weight: 74 kg

DRUGS (2)
  1. ZANAMIVIR [Suspect]
     Active Substance: ZANAMIVIR
     Indication: H1N1 INFLUENZA
     Dosage: 600 MG, BID
     Route: 042
     Dates: start: 20141114
  2. HEPARIN [Suspect]
     Active Substance: HEPARIN SODIUM
     Indication: EXTRACORPOREAL MEMBRANE OXYGENATION
     Dosage: UNK
     Route: 042
     Dates: start: 20141112, end: 20141117

REACTIONS (14)
  - Cough [Unknown]
  - Thrombocytopenia [Recovering/Resolving]
  - Ventricular drainage [Recovering/Resolving]
  - Vomiting [Unknown]
  - Oropharyngeal pain [Unknown]
  - Decreased appetite [Unknown]
  - Venous thrombosis [Recovering/Resolving]
  - Haemorrhage intracranial [Not Recovered/Not Resolved]
  - Anaemia [Recovering/Resolving]
  - Hyperbilirubinaemia [Recovering/Resolving]
  - Intracerebral haematoma evacuation [Recovering/Resolving]
  - Pyrexia [Unknown]
  - Dyspnoea [Unknown]
  - Diarrhoea [Unknown]

NARRATIVE: CASE EVENT DATE: 20141110
